FAERS Safety Report 19312027 (Version 2)
Quarter: 2022Q1

REPORT INFORMATION
  Report Type: Spontaneous
  Country: FR (occurrence: FR)
  Receive Date: 20210527
  Receipt Date: 20220317
  Transmission Date: 20220423
  Serious: Yes (Other)
  Sender: FDA-Public Use
  Company Number: FR-VERTEX PHARMACEUTICALS-2019-003955

PATIENT
  Age: 17 Year
  Sex: Male

DRUGS (6)
  1. VORICONAZOLE [Interacting]
     Active Substance: VORICONAZOLE
     Indication: Fungal test positive
     Dosage: 400 MILLIGRAM, ONCE A DAY
     Route: 065
  2. ORKAMBI [Interacting]
     Active Substance: IVACAFTOR\LUMACAFTOR
     Indication: Cystic fibrosis
     Dosage: 200 MG/125 MG: STARTED AT 1 PILL/D FOR 5 D, THEN 1 PILL BID UNTIL REACHING THE FINAL DOSE AT DAY 14
     Route: 065
  3. ORKAMBI [Interacting]
     Active Substance: IVACAFTOR\LUMACAFTOR
     Dosage: 2 DOSAGE FORM, TWO TIMES A DAY
     Route: 048
     Dates: start: 2015
  4. ORKAMBI [Interacting]
     Active Substance: IVACAFTOR\LUMACAFTOR
     Dosage: 1 DOSAGE FORM, TWO TIMES A DAY
     Route: 048
     Dates: start: 2015, end: 2015
  5. ORKAMBI [Interacting]
     Active Substance: IVACAFTOR\LUMACAFTOR
     Dosage: 1 DOSAGE FORM, ONCE A DAY,1 DOSAGE FORM QD
     Route: 048
     Dates: start: 201502, end: 2015
  6. TACROLIMUS [Interacting]
     Active Substance: TACROLIMUS
     Indication: Product used for unknown indication
     Dosage: 0.6 MILLIGRAM, ONCE A DAY
     Route: 065

REACTIONS (5)
  - Drug level decreased [Not Recovered/Not Resolved]
  - Drug level below therapeutic [Not Recovered/Not Resolved]
  - Forced expiratory volume decreased [Not Recovered/Not Resolved]
  - Immunosuppressant drug level decreased [Recovered/Resolved]
  - Drug interaction [Not Recovered/Not Resolved]
